FAERS Safety Report 5650167-2 (Version None)
Quarter: 2008Q1

REPORT INFORMATION
  Report Type: 
  Country: None (occurrence: None)
  Receive Date: 20080131
  Receipt Date: 20071226
  Transmission Date: 20080703
  Serious: No
  Sender: FDA-Public Use
  Company Number: US200712005184

PATIENT
  Age: 70 Year
  Sex: Male
  Weight: 99.8 kg

DRUGS (6)
  1. BYETTA [Suspect]
     Indication: TYPE 2 DIABETES MELLITUS
     Dosage: 5 UG, 2/D, SUBCUTANEOUS ; 10 UG, 2/D, SUBCUTANEOUS ; 5 UG, 2/D, SUBCUTANEOUS
     Route: 058
     Dates: start: 20070108, end: 20070208
  2. BYETTA [Suspect]
     Indication: TYPE 2 DIABETES MELLITUS
     Dosage: 5 UG, 2/D, SUBCUTANEOUS ; 10 UG, 2/D, SUBCUTANEOUS ; 5 UG, 2/D, SUBCUTANEOUS
     Route: 058
     Dates: start: 20070209, end: 20070311
  3. BYETTA [Suspect]
     Indication: TYPE 2 DIABETES MELLITUS
     Dosage: 5 UG, 2/D, SUBCUTANEOUS ; 10 UG, 2/D, SUBCUTANEOUS ; 5 UG, 2/D, SUBCUTANEOUS
     Route: 058
     Dates: start: 20070327, end: 20070423
  4. GLYBURIDE [Concomitant]
  5. ASPIRIN [Concomitant]
  6. LANTUS [Concomitant]

REACTIONS (4)
  - CARDIAC MURMUR [None]
  - DYSPNOEA [None]
  - HYPERHIDROSIS [None]
  - MITRAL VALVE STENOSIS [None]
